FAERS Safety Report 21901230 (Version 1)
Quarter: 2023Q1

REPORT INFORMATION
  Report Type: Spontaneous
  Country: FR (occurrence: FR)
  Receive Date: 20230123
  Receipt Date: 20230123
  Transmission Date: 20230417
  Serious: Yes (Other)
  Sender: FDA-Public Use
  Company Number: None

PATIENT
  Sex: Male
  Weight: 49 kg

DRUGS (4)
  1. AVIBACTAM SODIUM\CEFTAZIDIME [Suspect]
     Active Substance: AVIBACTAM SODIUM\CEFTAZIDIME
     Indication: Arthritis infective
     Dosage: 6 G, QD
     Route: 042
     Dates: start: 20220902, end: 20221201
  2. AZACTAM [Suspect]
     Active Substance: AZTREONAM
     Indication: Arthritis infective
     Dosage: 6 G, QD
     Route: 042
     Dates: start: 20220902, end: 20221201
  3. CIPROFLOXACIN [Suspect]
     Active Substance: CIPROFLOXACIN
     Indication: Arthritis infective
     Dosage: 1 G, QD
     Route: 042
     Dates: start: 20220913, end: 20221130
  4. BACTRIM [Suspect]
     Active Substance: SULFAMETHOXAZOLE\TRIMETHOPRIM
     Indication: Arthritis infective
     Dosage: 2 DF, QD
     Route: 048
     Dates: start: 20220822, end: 20221130

REACTIONS (1)
  - Hepatocellular injury [Recovered/Resolved]

NARRATIVE: CASE EVENT DATE: 20221110
